FAERS Safety Report 5023159-4 (Version None)
Quarter: 2006Q2

REPORT INFORMATION
  Report Type: 
  Country: None (occurrence: None)
  Receive Date: 20060612
  Receipt Date: 20060427
  Transmission Date: 20061013
  Serious: Yes (Other)
  Sender: FDA-Public Use
  Company Number: GB-BRISTOL-MYERS SQUIBB COMPANY-13362892

PATIENT
  Age: 50 Year
  Sex: Male

DRUGS (5)
  1. ABILIFY [Suspect]
     Indication: SCHIZOAFFECTIVE DISORDER
     Route: 048
     Dates: start: 20041101, end: 20050101
  2. CLOZARIL [Interacting]
     Indication: SCHIZOAFFECTIVE DISORDER
     Route: 048
     Dates: start: 20020101
  3. SERTRALINE [Concomitant]
     Route: 048
     Dates: start: 20020101
  4. UNSPECIFIED [Concomitant]
     Route: 048
     Dates: start: 20020101
  5. REBOXETINE [Concomitant]
     Indication: SCHIZOAFFECTIVE DISORDER
     Dates: start: 20040101

REACTIONS (2)
  - DIZZINESS [None]
  - DRUG INTERACTION [None]
